FAERS Safety Report 21032033 (Version 1)
Quarter: 2022Q3

REPORT INFORMATION
  Report Type: Spontaneous
  Country: US (occurrence: US)
  Receive Date: 20220701
  Receipt Date: 20220701
  Transmission Date: 20221027
  Serious: No
  Sender: FDA-Public Use
  Company Number: US-GLAXOSMITHKLINE-US2022AMR098261

PATIENT
  Sex: Female

DRUGS (2)
  1. LAMICTAL [Interacting]
     Active Substance: LAMOTRIGINE
     Indication: Product used for unknown indication
     Dosage: 500 MG, QD, 5 100 MG IMMEDIATE RELEASE TABLETS DAILY
  2. NEURONTIN [Interacting]
     Active Substance: GABAPENTIN
     Indication: Pain
     Dosage: UNK

REACTIONS (4)
  - Gait disturbance [Unknown]
  - Speech disorder [Unknown]
  - Drug interaction [Unknown]
  - Mood altered [Unknown]
